FAERS Safety Report 9172320 (Version 2)
Quarter: 2013Q2

REPORT INFORMATION
  Report Type: Spontaneous
  Country: BR (occurrence: BR)
  Receive Date: 20130319
  Receipt Date: 20130416
  Transmission Date: 20140414
  Serious: Yes (Hospitalization, Other)
  Sender: FDA-Public Use
  Company Number: BR-PFIZER INC-2013088380

PATIENT
  Age: 44 Year
  Sex: Male

DRUGS (4)
  1. EFEXOR [Suspect]
     Indication: SCHIZOPHRENIA
     Dosage: UNK
     Route: 048
  2. EFEXOR [Suspect]
     Indication: NERVOUSNESS
  3. HALDOL [Suspect]
     Indication: SCHIZOPHRENIA
     Dosage: UNK
  4. HALDOL [Suspect]
     Indication: NERVOUSNESS

REACTIONS (5)
  - Crohn^s disease [Recovered/Resolved]
  - Schizophrenia [Unknown]
  - Gastrointestinal disorder [Recovered/Resolved]
  - Off label use [Unknown]
  - Movement disorder [Unknown]
